FAERS Safety Report 7829931-7 (Version None)
Quarter: 2011Q4

REPORT INFORMATION
  Report Type: 
  Country: None (occurrence: None)
  Receive Date: 20111021
  Receipt Date: 20110930
  Transmission Date: 20120403
  Serious: Yes (Hospitalization)
  Sender: FDA-Public Use
  Company Number: US-BAYER-2011-037636

PATIENT
  Age: 35 Year
  Sex: Female
  Weight: 61.224 kg

DRUGS (1)
  1. YASMIN [Suspect]
     Indication: CONTRACEPTION
     Dosage: UNK
     Dates: start: 20010101, end: 20090101

REACTIONS (13)
  - CHOLECYSTITIS CHRONIC [None]
  - EMOTIONAL DISTRESS [None]
  - ANXIETY [None]
  - PAIN [None]
  - ANHEDONIA [None]
  - GALLBLADDER CHOLESTEROLOSIS [None]
  - CHOLECYSTECTOMY [None]
  - GENERAL PHYSICAL HEALTH DETERIORATION [None]
  - ORGAN FAILURE [None]
  - INJURY [None]
  - GALLBLADDER DISORDER [None]
  - CHOLECYSTITIS [None]
  - CHOLELITHIASIS [None]
